FAERS Safety Report 14934310 (Version 1)
Quarter: 2018Q2

REPORT INFORMATION
  Report Type: Spontaneous
  Country: DE (occurrence: DE)
  Receive Date: 20180524
  Receipt Date: 20180524
  Transmission Date: 20180711
  Serious: Yes (Other)
  Sender: FDA-Public Use
  Company Number: DE-LPDUSPRD-20180840

PATIENT

DRUGS (1)
  1. FERINJECT [Suspect]
     Active Substance: FERRIC CARBOXYMALTOSE
     Dosage: UNSPECIFIED DOSE/DILUTION
     Route: 065

REACTIONS (1)
  - Cardiovascular disorder [Unknown]
